FAERS Safety Report 11876316 (Version 2)
Quarter: 2015Q4

REPORT INFORMATION
  Report Type: Spontaneous
  Country: DE (occurrence: DE)
  Receive Date: 20151229
  Receipt Date: 20151229
  Transmission Date: 20160305
  Serious: Yes (Death, Life-Threatening, Hospitalization, Other)
  Sender: FDA-Public Use
  Company Number: DE-BAYER-2015-489409

PATIENT
  Age: 53 Year
  Sex: Male

DRUGS (10)
  1. CERTOPARIN SODIUM [Concomitant]
     Active Substance: CERTOPARIN SODIUM
     Indication: PLATELET AGGREGATION INHIBITION
     Dosage: 3000 U, BID
     Route: 042
  2. EPTIFIBATIDE. [Concomitant]
     Active Substance: EPTIFIBATIDE
     Dosage: 185 MG, UNK
     Route: 040
  3. ACETYLSALICYLIC ACID({=100 MG) [Interacting]
     Active Substance: ASPIRIN
     Indication: ANTIPLATELET THERAPY
     Dosage: 500 MG, ONCE
     Route: 042
     Dates: start: 20150417, end: 20150417
  4. TICAGRELOR [Concomitant]
     Active Substance: TICAGRELOR
     Indication: ANTIPLATELET THERAPY
     Dosage: 90 MG, BID
     Route: 048
  5. IBUPROFEN. [Interacting]
     Active Substance: IBUPROFEN
     Dosage: 400 MG, QD, TAKEN AT LEAST 2 H AFTER ASA
     Route: 048
  6. ACETYLSALICYLIC ACID({=100 MG) [Interacting]
     Active Substance: ASPIRIN
     Indication: ANTIPLATELET THERAPY
     Dosage: 100 MG, QD
     Route: 048
  7. DEXAMETHASONE. [Concomitant]
     Active Substance: DEXAMETHASONE
     Indication: PROPHYLAXIS
     Dosage: 4 MG, TID
     Route: 048
  8. ACETYLSALICYLIC ACID({=100 MG) [Suspect]
     Active Substance: ASPIRIN
     Indication: ANTIPLATELET THERAPY
     Dosage: 500 MG, LOADING DOSE
     Route: 042
     Dates: start: 20150417, end: 20150417
  9. DEXAMETHASONE. [Concomitant]
     Active Substance: DEXAMETHASONE
     Indication: PROPHYLAXIS
     Dosage: 40 MG, UNK
     Route: 042
  10. TICAGRELOR [Concomitant]
     Active Substance: TICAGRELOR
     Indication: ANTIPLATELET THERAPY
     Dosage: 180 MG, LOADING DOSE
     Route: 042
     Dates: start: 20150417, end: 20150417

REACTIONS (8)
  - Brain stem infarction [Fatal]
  - Brain herniation [Fatal]
  - Cerebral ischaemia [None]
  - Basilar artery thrombosis [Recovered/Resolved]
  - Inhibitory drug interaction [None]
  - Cardio-respiratory arrest [Fatal]
  - Drug ineffective [None]
  - Brain oedema [Fatal]
